FAERS Safety Report 14188802 (Version 1)
Quarter: 2017Q4

REPORT INFORMATION
  Report Type: Spontaneous
  Country: IT (occurrence: IT)
  Receive Date: 20171114
  Receipt Date: 20171114
  Transmission Date: 20180321
  Serious: Yes (Hospitalization, Other)
  Sender: FDA-Public Use
  Company Number: IT-MYLANLABS-2017M1044279

PATIENT
  Age: 35 Year
  Sex: Male

DRUGS (5)
  1. FLUMAZENIL. [Suspect]
     Active Substance: FLUMAZENIL
     Indication: DRUG DETOXIFICATION
     Dosage: 40.5 MCG/HOUR FOR 24 HOURS/DAY FOR 7 DAYS
     Route: 058
  2. CLONAZEPAM. [Concomitant]
     Active Substance: CLONAZEPAM
     Indication: PRODUCT USED FOR UNKNOWN INDICATION
     Dosage: UNK
  3. DIAZEPAM. [Suspect]
     Active Substance: DIAZEPAM
     Indication: PRODUCT USED FOR UNKNOWN INDICATION
     Dosage: 600 MG, UNK
  4. CLOBAZAM [Concomitant]
     Active Substance: CLOBAZAM
     Indication: PRODUCT USED FOR UNKNOWN INDICATION
     Dosage: UNK
  5. VALPROIC ACID. [Concomitant]
     Active Substance: VALPROIC ACID
     Indication: PRODUCT USED FOR UNKNOWN INDICATION
     Dosage: UNK

REACTIONS (5)
  - Intentional overdose [Recovered/Resolved]
  - Intentional product misuse [Recovered/Resolved]
  - Product use issue [Recovered/Resolved]
  - Drug withdrawal convulsions [Recovered/Resolved]
  - Drug dependence [Recovered/Resolved]
